FAERS Safety Report 4280129-1 (Version None)
Quarter: 2004Q1

REPORT INFORMATION
  Report Type: 
  Country: None (occurrence: None)
  Receive Date: 20040123
  Receipt Date: 20040120
  Transmission Date: 20041129
  Serious: Yes (Other)
  Sender: FDA-Public Use
  Company Number: 2004194784US

PATIENT
  Sex: 0

DRUGS (3)
  1. CELEBREX [Suspect]
  2. VIOXX [Suspect]
  3. ALEVE [Suspect]

REACTIONS (2)
  - ASTHMA [None]
  - CONVULSION [None]
